FAERS Safety Report 10181446 (Version 2)
Quarter: 2014Q2

REPORT INFORMATION
  Report Type: Report from Study
  Country: CA (occurrence: CA)
  Receive Date: 20140519
  Receipt Date: 20140603
  Transmission Date: 20141212
  Serious: Yes (Life-Threatening, Hospitalization)
  Sender: FDA-Public Use
  Company Number: CA-JNJFOC-20140509468

PATIENT
  Age: 75 Year
  Sex: Female

DRUGS (6)
  1. REMICADE [Suspect]
     Indication: RHEUMATOID ARTHRITIS
     Route: 042
     Dates: start: 20050628, end: 20140227
  2. DIDROCAL [Concomitant]
     Indication: OSTEOPOROSIS
     Route: 065
  3. ALPHAGAN [Concomitant]
     Indication: GLAUCOMA
     Route: 047
  4. LUMIGAN [Concomitant]
     Indication: GLAUCOMA
     Route: 047
  5. COSOPT [Concomitant]
     Indication: GLAUCOMA
     Route: 047
  6. METHOTREXATE [Concomitant]
     Indication: RHEUMATOID ARTHRITIS
     Route: 048

REACTIONS (3)
  - Pancreatic carcinoma metastatic [Unknown]
  - Intracardiac thrombus [Unknown]
  - Thrombosis [Unknown]
